FAERS Safety Report 21185319 (Version 4)
Quarter: 2023Q2

REPORT INFORMATION
  Report Type: Spontaneous
  Country: US (occurrence: US)
  Receive Date: 20220808
  Receipt Date: 20230607
  Transmission Date: 20230722
  Serious: Yes (Death, Hospitalization)
  Sender: FDA-Public Use
  Company Number: US-PFIZER INC-PV202200037581

PATIENT
  Age: 75 Year
  Sex: Female

DRUGS (1)
  1. INLYTA [Suspect]
     Active Substance: AXITINIB
     Dosage: UNK

REACTIONS (9)
  - Death [Fatal]
  - Rectal haemorrhage [Unknown]
  - Vaginal haemorrhage [Unknown]
  - Vomiting [Unknown]
  - Dehydration [Unknown]
  - Diarrhoea [Unknown]
  - Nausea [Unknown]
  - Fatigue [Unknown]
  - Sinusitis [Unknown]

NARRATIVE: CASE EVENT DATE: 20220701
